FAERS Safety Report 8166287-7 (Version None)
Quarter: 2012Q1

REPORT INFORMATION
  Report Type: 
  Country: None (occurrence: None)
  Receive Date: 20120227
  Receipt Date: 20110701
  Transmission Date: 20120608
  Serious: No
  Sender: FDA-Public Use
  Company Number: US-MYLANLABS-2011S1010804

PATIENT
  Age: 14 Year
  Sex: Female
  Weight: 57.61 kg

DRUGS (1)
  1. AMNESTEEM [Suspect]
     Indication: ACNE CYSTIC
     Dates: start: 20110401, end: 20110518

REACTIONS (4)
  - BACK PAIN [None]
  - LIP DRY [None]
  - MUSCLE SPASMS [None]
  - NASAL DRYNESS [None]
